FAERS Safety Report 11852714 (Version 2)
Quarter: 2015Q4

REPORT INFORMATION
  Report Type: Report from Study
  Country: GR (occurrence: GR)
  Receive Date: 20151218
  Receipt Date: 20151230
  Transmission Date: 20160305
  Serious: Yes (Hospitalization)
  Sender: FDA-Public Use
  Company Number: GR-ABBVIE-15P-066-1494725-00

PATIENT
  Age: 59 Year
  Sex: Male
  Weight: 100 kg

DRUGS (5)
  1. DUODOPA [Suspect]
     Active Substance: CARBIDOPA\LEVODOPA
     Dosage: MORNING DOSE: 13 ML, CONTINUOUS RATE: 7.9 ML/H, EXTRA DOSE: 2 ML
     Route: 050
  2. EUCREAS [Concomitant]
     Active Substance: METFORMIN HYDROCHLORIDE\VILDAGLIPTIN
     Indication: DIABETES MELLITUS
     Dosage: (50+1000) MG
     Route: 048
  3. DUODOPA [Suspect]
     Active Substance: CARBIDOPA\LEVODOPA
     Dosage: MORNING DOSE: 18 ML;CONTINUOUS RATE: 8.2 ML/H;EXTRA DOSE: 3 ML
     Route: 050
  4. DUODOPA [Suspect]
     Active Substance: CARBIDOPA\LEVODOPA
     Indication: PARKINSON^S DISEASE
     Dosage: MORNING DOSE: 18 ML;CONTINUOUS RATE: 8.5 ML/H;EXTRA DOSE: 4 ML
     Route: 050
     Dates: start: 20151014, end: 20151021
  5. DUODOPA [Suspect]
     Active Substance: CARBIDOPA\LEVODOPA
     Dosage: MORNING DOSE: 18 ML;CONTINUOUS RATE: 8.5 ML/H;EXTRA DOSE: 4 ML
     Route: 050
     Dates: start: 20151029

REACTIONS (8)
  - Urinary tract infection [Not Recovered/Not Resolved]
  - Scan abdomen abnormal [Unknown]
  - Abdominal pain [Unknown]
  - Blood glucose increased [Unknown]
  - Anaemia [Unknown]
  - Blood triglycerides increased [Unknown]
  - Stoma site pain [Recovered/Resolved]
  - Glycosylated haemoglobin increased [Unknown]

NARRATIVE: CASE EVENT DATE: 20151019
